FAERS Safety Report 11321992 (Version 4)
Quarter: 2021Q1

REPORT INFORMATION
  Report Type: Spontaneous
  Country: CA (occurrence: CA)
  Receive Date: 20150729
  Receipt Date: 20210121
  Transmission Date: 20210419
  Serious: Yes (Hospitalization)
  Sender: FDA-Public Use
  Company Number: CA-ROCHE-1613905

PATIENT
  Age: 75 Year
  Sex: Female

DRUGS (18)
  1. BENADRYL [Concomitant]
     Active Substance: DIPHENHYDRAMINE HYDROCHLORIDE
  2. PERJETA [Suspect]
     Active Substance: PERTUZUMAB
     Indication: HER2 POSITIVE BREAST CANCER
     Route: 042
  3. DOCETAXEL. [Suspect]
     Active Substance: DOCETAXEL
     Indication: HER2 POSITIVE BREAST CANCER
     Route: 042
  4. HERCEPTIN [Suspect]
     Active Substance: TRASTUZUMAB
     Indication: HER2 POSITIVE BREAST CANCER
     Dosage: VIALS ? POWDER FOR SOLUTION INTRAVENOUS
     Route: 042
  5. PERJETA [Suspect]
     Active Substance: PERTUZUMAB
     Dosage: THERAPY DURATION: 1 DAY
     Route: 042
  6. VASOTEC [Concomitant]
     Active Substance: ENALAPRIL MALEATE
  7. STEMETIL [Concomitant]
     Active Substance: PROCHLORPERAZINE
  8. TYLENOL [Concomitant]
     Active Substance: ACETAMINOPHEN
  9. ZOFRAN [Concomitant]
     Active Substance: ONDANSETRON HYDROCHLORIDE
  10. CARBOPLATIN. [Suspect]
     Active Substance: CARBOPLATIN
     Indication: HER2 POSITIVE BREAST CANCER
     Dosage: THERAPY DURATION: 1 DAY
     Route: 042
  11. CARBOPLATIN. [Suspect]
     Active Substance: CARBOPLATIN
     Route: 042
  12. HERCEPTIN [Suspect]
     Active Substance: TRASTUZUMAB
     Dosage: THERAPY DURATION: 1 DAY, VIALS
     Route: 042
  13. DOCETAXEL. [Suspect]
     Active Substance: DOCETAXEL
     Dosage: THERAPY DURATION: 0 DAYS
     Route: 042
  14. EMEND [Concomitant]
     Active Substance: APREPITANT
  15. IMODIUM [Concomitant]
     Active Substance: LOPERAMIDE HYDROCHLORIDE
  16. DECADRON [Concomitant]
     Active Substance: DEXAMETHASONE
  17. NEUPOGEN [Concomitant]
     Active Substance: FILGRASTIM
  18. ONDANSETRON HYDROCHLORIDE. [Concomitant]
     Active Substance: ONDANSETRON HYDROCHLORIDE
     Dosage: THERAPY DURATION: 105 DAYS

REACTIONS (2)
  - Hypomagnesaemia [Recovered/Resolved]
  - Hypermagnesaemia [Recovered/Resolved]
